FAERS Safety Report 15418466 (Version 1)
Quarter: 2018Q3

REPORT INFORMATION
  Report Type: Spontaneous
  Country: US (occurrence: US)
  Receive Date: 20180924
  Receipt Date: 20180924
  Transmission Date: 20181010
  Serious: No
  Sender: FDA-Public Use
  Company Number: US-SA-2018SA259940

PATIENT

DRUGS (1)
  1. XYZAL ALLERGY 24HR [Suspect]
     Active Substance: LEVOCETIRIZINE DIHYDROCHLORIDE
     Indication: AUTOIMMUNE DERMATITIS
     Dosage: 1/2 A PILL DAILY
     Route: 065

REACTIONS (2)
  - Somnolence [Unknown]
  - Wrong technique in product usage process [Unknown]
